FAERS Safety Report 8584226-1 (Version None)
Quarter: 2012Q3

REPORT INFORMATION
  Report Type: 
  Country: None (occurrence: None)
  Receive Date: 20120810
  Receipt Date: 20120806
  Transmission Date: 20120928
  Serious: Yes (Hospitalization, Disabling, Other)
  Sender: FDA-Public Use
  Company Number: US-AMGEN-USASP2012049535

PATIENT
  Age: 54 Year
  Sex: Female

DRUGS (2)
  1. TREXALL [Concomitant]
     Dosage: UNK MG, 9 WEEKLY
     Dates: start: 20100101, end: 20120201
  2. ENBREL [Suspect]
     Indication: RHEUMATOID ARTHRITIS
     Dosage: 50 MG, QWK
     Dates: start: 20111230, end: 20120101

REACTIONS (3)
  - MOBILITY DECREASED [None]
  - STAPHYLOCOCCAL SEPSIS [None]
  - LEG AMPUTATION [None]
